FAERS Safety Report 5661841-6 (Version None)
Quarter: 2008Q1

REPORT INFORMATION
  Report Type: 
  Country: None (occurrence: None)
  Receive Date: 20080312
  Receipt Date: 20080310
  Transmission Date: 20080703
  Serious: Yes (Disabling)
  Sender: FDA-Public Use
  Company Number: CA-ASTRAZENECA-2008UW02002

PATIENT
  Age: 23298 Day
  Sex: Male
  Weight: 65.9 kg

DRUGS (5)
  1. CRESTOR [Suspect]
     Indication: BLOOD CHOLESTEROL
     Route: 048
     Dates: start: 20070103
  2. COUMADIN [Concomitant]
     Indication: ANTICOAGULANT THERAPY
     Route: 048
     Dates: start: 20070703
  3. RIVASA [Concomitant]
     Indication: ANTICOAGULANT THERAPY
     Route: 048
     Dates: start: 20070419
  4. LOPRESSOR [Concomitant]
     Indication: ANGINA PECTORIS
     Route: 048
     Dates: start: 20070419
  5. LOPRESSOR [Concomitant]
     Indication: HYPERTENSION
     Route: 048
     Dates: start: 20070419

REACTIONS (2)
  - DIZZINESS [None]
  - PARAESTHESIA [None]
